FAERS Safety Report 22798070 (Version 2)
Quarter: 2024Q1

REPORT INFORMATION
  Report Type: Spontaneous
  Country: JP (occurrence: JP)
  Receive Date: 20230808
  Receipt Date: 20240220
  Transmission Date: 20240410
  Serious: Yes (Hospitalization, Other)
  Sender: FDA-Public Use
  Company Number: JP-002147023-NVSJ2023JP012096

PATIENT
  Age: 61 Year
  Sex: Female

DRUGS (7)
  1. OCTREOTIDE ACETATE [Suspect]
     Active Substance: OCTREOTIDE ACETATE
     Indication: Neuroendocrine tumour of the rectum
     Dosage: UNK
     Route: 065
     Dates: start: 201311, end: 201807
  2. OCTREOTIDE ACETATE [Suspect]
     Active Substance: OCTREOTIDE ACETATE
     Dosage: UNK
     Route: 065
     Dates: start: 201902
  3. OCTREOTIDE ACETATE [Suspect]
     Active Substance: OCTREOTIDE ACETATE
     Dosage: UNK
     Route: 065
     Dates: start: 201909
  4. AFINITOR [Suspect]
     Active Substance: EVEROLIMUS
     Indication: Neuroendocrine tumour of the rectum
     Dosage: UNK
     Route: 048
     Dates: start: 201807, end: 201902
  5. AFINITOR [Suspect]
     Active Substance: EVEROLIMUS
     Dosage: UNK
     Route: 048
     Dates: start: 201909
  6. SANDOSTATIN [Suspect]
     Active Substance: OCTREOTIDE ACETATE
     Indication: Rectal neoplasm
     Dosage: UNK
     Route: 065
     Dates: start: 20130108
  7. OCTREOSCAN [Concomitant]
     Active Substance: INDIUM IN-111 CHLORIDE\INDIUM IN-111 PENTETREOTIDE
     Indication: Product used for unknown indication
     Dosage: UNK
     Route: 065
     Dates: start: 20220901

REACTIONS (8)
  - General physical health deterioration [Unknown]
  - Metastases to liver [Unknown]
  - Inferior vena caval occlusion [Unknown]
  - Oedema peripheral [Unknown]
  - Malignant neoplasm progression [Unknown]
  - Metastases to spine [Unknown]
  - Neurological symptom [Unknown]
  - Neutropenia [Unknown]

NARRATIVE: CASE EVENT DATE: 20131101
